FAERS Safety Report 16495358 (Version 1)
Quarter: 2019Q2

REPORT INFORMATION
  Report Type: Spontaneous
  Country: BR (occurrence: BR)
  Receive Date: 20190628
  Receipt Date: 20190628
  Transmission Date: 20190711
  Serious: Yes (Other)
  Sender: FDA-Public Use
  Company Number: BR-PFIZER INC-2019273460

PATIENT
  Age: 71 Year
  Sex: Male

DRUGS (1)
  1. LIPITOR [Suspect]
     Active Substance: ATORVASTATIN CALCIUM
     Indication: BLOOD CHOLESTEROL ABNORMAL
     Dosage: 20 MG, 2X/DAY, (1 TABLET EVERY 12 HOURS)

REACTIONS (4)
  - Myocardial infarction [Unknown]
  - Off label use [Unknown]
  - Aortic aneurysm [Unknown]
  - Renal disorder [Unknown]

NARRATIVE: CASE EVENT DATE: 2002
